FAERS Safety Report 9080462 (Version 1)
Quarter: 2013Q1

REPORT INFORMATION
  Report Type: Report from Study
  Country: US (occurrence: US)
  Receive Date: 20130130
  Receipt Date: 20130130
  Transmission Date: 20140127
  Serious: No
  Sender: FDA-Public Use
  Company Number: US-ABBOTT-12P-163-0970496-00

PATIENT
  Sex: Female

DRUGS (4)
  1. HUMIRA 40 MG/0.8 ML PEN [Suspect]
     Indication: CROHN^S DISEASE
     Route: 058
     Dates: start: 20120330, end: 201206
  2. HUMIRA 40 MG/0.8 ML PEN [Suspect]
     Indication: ARTHRITIS ENTEROPATHIC
     Route: 058
     Dates: start: 201208
  3. APRI [Concomitant]
     Indication: PRODUCT USED FOR UNKNOWN INDICATION
  4. ADERAL [Concomitant]
     Indication: PRODUCT USED FOR UNKNOWN INDICATION

REACTIONS (1)
  - Hypoaesthesia [Recovered/Resolved]
